FAERS Safety Report 22638316 (Version 3)
Quarter: 2023Q4

REPORT INFORMATION
  Report Type: Spontaneous
  Country: BR (occurrence: BR)
  Receive Date: 20230626
  Receipt Date: 20231008
  Transmission Date: 20240110
  Serious: Yes (Other)
  Sender: FDA-Public Use
  Company Number: BR-BoehringerIngelheim-2023-BI-245130

PATIENT
  Sex: Female

DRUGS (2)
  1. ATROVENT [Suspect]
     Active Substance: IPRATROPIUM BROMIDE
     Indication: Product used for unknown indication
  2. FENOTEROL HYDROBROMIDE\IPRATROPIUM BROMIDE [Suspect]
     Active Substance: FENOTEROL HYDROBROMIDE\IPRATROPIUM BROMIDE
     Indication: Product used for unknown indication

REACTIONS (21)
  - Cerebrovascular accident [Unknown]
  - Asthmatic crisis [Unknown]
  - Impaired work ability [Unknown]
  - Quality of life decreased [Unknown]
  - Irritability [Unknown]
  - Fatigue [Unknown]
  - Malaise [Unknown]
  - Therapeutic product effect variable [Unknown]
  - Drug effect faster than expected [Unknown]
  - Pulmonary function test decreased [Unknown]
  - Chronic obstructive pulmonary disease [Unknown]
  - Therapeutic product effect delayed [Unknown]
  - Therapeutic product effect decreased [Unknown]
  - Emotional disorder [Unknown]
  - Product availability issue [Unknown]
  - Malaise [Unknown]
  - Tremor [Unknown]
  - Limb injury [Unknown]
  - Parkinson^s disease [Unknown]
  - Emphysema [Unknown]
  - Drug ineffective [Unknown]
